FAERS Safety Report 5472060-0 (Version None)
Quarter: 2007Q3

REPORT INFORMATION
  Report Type: 
  Country: None (occurrence: None)
  Receive Date: 20070928
  Receipt Date: 20070919
  Transmission Date: 20080115
  Serious: Yes (Other)
  Sender: FDA-Public Use
  Company Number: DE-PFIZER INC-2007079081

PATIENT
  Age: 56 Year
  Sex: Male

DRUGS (6)
  1. SERTRALINE [Suspect]
     Indication: DEPRESSION
     Dosage: DAILY DOSE:100MG
  2. LITHIUM [Suspect]
     Dosage: DAILY DOSE:750MG
     Dates: start: 20070101
  3. TRAZODONE HYDROCHLORIDE [Suspect]
     Indication: DEPRESSION
     Dosage: DAILY DOSE:100MG
  4. ESCITALOPRAM OXALATE [Suspect]
     Dosage: DAILY DOSE:10MG
  5. AMLODIPINE [Concomitant]
     Dosage: DAILY DOSE:10MG
  6. PHENYTOIN [Concomitant]
     Dosage: DAILY DOSE:300MG

REACTIONS (1)
  - SEROTONIN SYNDROME [None]
